FAERS Safety Report 8564505-4 (Version None)
Quarter: 2012Q3

REPORT INFORMATION
  Report Type: 
  Country: None (occurrence: None)
  Receive Date: 20120803
  Receipt Date: 20120726
  Transmission Date: 20120928
  Serious: Yes (Other)
  Sender: FDA-Public Use
  Company Number: US-JNJFOC-20110911019

PATIENT
  Sex: Female
  Weight: 102.06 kg

DRUGS (9)
  1. PROPRANOLOL [Concomitant]
     Indication: HYPERTENSION
     Route: 065
  2. CLONAZEPAM [Concomitant]
     Indication: ANXIETY
     Route: 065
  3. IMODIUM MULTI-SYMPTOM RELIEF [Suspect]
     Indication: DIARRHOEA
     Dosage: 1 CAPLET DAILY IN THE MORNING
     Route: 065
  4. FLUVOXAMINE MALEATE [Concomitant]
     Indication: ANXIETY
     Route: 065
  5. PEPCID AC [Concomitant]
     Indication: DYSPEPSIA
     Route: 065
  6. UNSPECIFIED CREAMS NOS [Concomitant]
     Indication: SKIN IRRITATION
     Route: 065
  7. WARFARIN SODIUM [Concomitant]
     Indication: ATRIAL FIBRILLATION
     Route: 065
  8. IMODIUM MULTI-SYMPTOM RELIEF [Suspect]
     Indication: IRRITABLE BOWEL SYNDROME
     Dosage: 1 CAPLET DAILY IN THE MORNING
     Route: 065
  9. FUROSEMIDE [Concomitant]
     Indication: DIURETIC THERAPY
     Route: 065

REACTIONS (9)
  - ABDOMINAL PAIN UPPER [None]
  - ATRIAL FIBRILLATION [None]
  - NAUSEA [None]
  - APPETITE DISORDER [None]
  - WEIGHT DECREASED [None]
  - CYSTITIS [None]
  - ANXIETY [None]
  - OBSESSIVE-COMPULSIVE DISORDER [None]
  - MALAISE [None]
